FAERS Safety Report 5787011-9 (Version None)
Quarter: 2008Q2

REPORT INFORMATION
  Report Type: 
  Country: None (occurrence: None)
  Receive Date: 20080625
  Receipt Date: 20080610
  Transmission Date: 20081010
  Serious: Yes (Hospitalization)
  Sender: FDA-Public Use
  Company Number: CZ-JNJFOC-20080502586

PATIENT
  Sex: Female

DRUGS (3)
  1. NOAX UNO [Suspect]
     Indication: DRUG USE FOR UNKNOWN INDICATION
     Route: 048
  2. PREDNISONE TAB [Concomitant]
     Dosage: 5-10MG
     Route: 065
  3. DICLOFENAC SODIUM [Concomitant]
     Route: 065

REACTIONS (1)
  - ACUTE VESTIBULAR SYNDROME [None]
